FAERS Safety Report 15945474 (Version 2)
Quarter: 2019Q1

REPORT INFORMATION
  Report Type: Report from Study
  Country: None (occurrence: US)
  Receive Date: 20190211
  Receipt Date: 20190319
  Transmission Date: 20190417
  Serious: Yes (Hospitalization, Other)
  Sender: FDA-Public Use
  Company Number: US-ABBVIE-19K-163-2654291-00

PATIENT
  Age: 51 Year
  Sex: Female
  Weight: 80.81 kg

DRUGS (5)
  1. TRAMADOL. [Concomitant]
     Active Substance: TRAMADOL
     Indication: PAIN
  2. HUMIRA [Suspect]
     Active Substance: ADALIMUMAB
     Indication: CROHN^S DISEASE
     Route: 058
     Dates: start: 201303, end: 201805
  3. ZOLOFT [Concomitant]
     Active Substance: SERTRALINE HYDROCHLORIDE
     Indication: DEPRESSION
  4. XANAX [Concomitant]
     Active Substance: ALPRAZOLAM
     Indication: ANXIETY
  5. IMODIUM [Concomitant]
     Active Substance: LOPERAMIDE HYDROCHLORIDE
     Indication: DIARRHOEA

REACTIONS (17)
  - Benign neoplasm of thyroid gland [Recovered/Resolved]
  - Diarrhoea [Unknown]
  - Post procedural complication [Unknown]
  - Blood thyroid stimulating hormone increased [Recovered/Resolved]
  - Post procedural complication [Recovered/Resolved]
  - Hodgkin^s disease [Not Recovered/Not Resolved]
  - Asthenia [Recovered/Resolved]
  - Fatigue [Unknown]
  - Injection site pain [Recovered/Resolved]
  - Loss of personal independence in daily activities [Recovered/Resolved]
  - Injection site pain [Unknown]
  - Weight increased [Recovered/Resolved]
  - Hyperthyroidism [Recovered/Resolved]
  - Feeding disorder [Recovered/Resolved]
  - Lymphadenopathy [Unknown]
  - Arthralgia [Unknown]
  - Drug effect incomplete [Recovered/Resolved]

NARRATIVE: CASE EVENT DATE: 201303
